FAERS Safety Report 21689712 (Version 1)
Quarter: 2022Q4

REPORT INFORMATION
  Report Type: Spontaneous
  Country: US (occurrence: None)
  Receive Date: 20221205
  Receipt Date: 20221205
  Transmission Date: 20230113
  Serious: Yes (Other)
  Sender: FDA-Public Use
  Company Number: None

PATIENT
  Sex: Male

DRUGS (5)
  1. STELARA [Suspect]
     Active Substance: USTEKINUMAB
     Indication: Crohn^s disease
     Dosage: 90 MG/ML SUBCUTANEOUS ??INJECT 1 SYRINGE UNDER THE SKIN (SUBCUTAENOUS INJECTION) EVERY 8 WEEKS
     Route: 058
     Dates: start: 20200922
  2. STELARA [Suspect]
     Active Substance: USTEKINUMAB
     Indication: Intestinal obstruction
  3. ASPIRIN TAB EC [Concomitant]
  4. FERROUS SULF TAB [Concomitant]
  5. VITAMIN D CAP [Concomitant]

REACTIONS (1)
  - Dialysis [None]
